FAERS Safety Report 9105885 (Version 1)
Quarter: 2013Q1

REPORT INFORMATION
  Report Type: Spontaneous
  Country: US (occurrence: US)
  Receive Date: 20130220
  Receipt Date: 20130220
  Transmission Date: 20140127
  Serious: Yes (Other)
  Sender: FDA-Public Use
  Company Number: US-JNJFOC-20130207955

PATIENT
  Age: 45 Year
  Sex: Male

DRUGS (2)
  1. BACITRACIN ZINC/NEOMYCIN/POLYMYXIN B SULFATE [Suspect]
     Indication: WOUND
     Route: 061
  2. HYDROGEN PEROXIDE [Suspect]
     Indication: WOUND
     Route: 061

REACTIONS (2)
  - Dermatitis contact [Recovered/Resolved]
  - Cellulitis [Recovered/Resolved]
